FAERS Safety Report 17625325 (Version 1)
Quarter: 2020Q2

REPORT INFORMATION
  Report Type: Report from Study
  Country: BY (occurrence: BY)
  Receive Date: 20200403
  Receipt Date: 20200403
  Transmission Date: 20200713
  Serious: Yes (Other)
  Sender: FDA-Public Use
  Company Number: BY-ROCHE-2552775

PATIENT

DRUGS (6)
  1. SIROLIMUS. [Suspect]
     Active Substance: SIROLIMUS
     Indication: PROPHYLAXIS AGAINST TRANSPLANT REJECTION
     Route: 065
  2. MYCOPHENOLIC ACID. [Suspect]
     Active Substance: MYCOPHENOLIC ACID
     Indication: PROPHYLAXIS AGAINST TRANSPLANT REJECTION
     Route: 065
  3. CICLOSPORIN [Suspect]
     Active Substance: CYCLOSPORINE
     Indication: PROPHYLAXIS AGAINST TRANSPLANT REJECTION
     Route: 065
  4. MYCOPHENOLATE MOFETIL. [Suspect]
     Active Substance: MYCOPHENOLATE MOFETIL
     Indication: PROPHYLAXIS AGAINST TRANSPLANT REJECTION
     Route: 065
  5. TACROLIMUS. [Suspect]
     Active Substance: TACROLIMUS
     Indication: PROPHYLAXIS AGAINST TRANSPLANT REJECTION
     Route: 065
  6. AZATHIOPRINE. [Suspect]
     Active Substance: AZATHIOPRINE
     Indication: PROPHYLAXIS AGAINST TRANSPLANT REJECTION
     Route: 065

REACTIONS (16)
  - Diarrhoea [Unknown]
  - BK virus infection [Unknown]
  - Basal cell carcinoma [Unknown]
  - Cytomegalovirus infection [Unknown]
  - Squamous cell carcinoma of skin [Unknown]
  - Bowen^s disease [Unknown]
  - Skin cancer [Unknown]
  - Skin papilloma [Unknown]
  - Bronchitis [Unknown]
  - Pneumonia [Unknown]
  - Renal impairment [Unknown]
  - Urinary tract infection [Unknown]
  - Oedema peripheral [Unknown]
  - Oral herpes [Unknown]
  - Nasopharyngitis [Unknown]
  - Herpes zoster [Unknown]
